FAERS Safety Report 8938418 (Version 1)
Quarter: 2012Q4

REPORT INFORMATION
  Report Type: 
  Country: IT (occurrence: IT)
  Receive Date: 20121203
  Receipt Date: 20121203
  Transmission Date: 20130627
  Serious: Yes (Other)
  Sender: FDA-Public Use
  Company Number: PHHY2012IT109831

PATIENT
  Age: 37 Year
  Sex: Female

DRUGS (3)
  1. GILENYA [Suspect]
     Indication: MULTIPLE SCLEROSIS
     Dosage: 0.5 mg, QD
     Route: 048
     Dates: start: 20120613, end: 20121031
  2. GILENYA [Suspect]
     Dosage: 0.5 mg, QD
  3. CARBAMAZEPINE [Concomitant]
     Dosage: 1200 mg, UNK

REACTIONS (1)
  - Kaposi^s varicelliform eruption [Recovered/Resolved]
